FAERS Safety Report 9458007 (Version 1)
Quarter: 2013Q3

REPORT INFORMATION
  Report Type: Spontaneous
  Country: US (occurrence: US)
  Receive Date: 20130814
  Receipt Date: 20130814
  Transmission Date: 20140515
  Serious: No
  Sender: FDA-Public Use
  Company Number: US-MYLANLABS-2012S1021684

PATIENT
  Age: 82 Year
  Sex: Female

DRUGS (4)
  1. NISOLDIPINE EXTENDED-RELEASE TABLETS [Suspect]
     Indication: BLOOD PRESSURE INCREASED
     Route: 048
     Dates: start: 2010
  2. DIOVAN [Concomitant]
     Indication: BLOOD PRESSURE INCREASED
     Route: 048
  3. SYNTHROID [Concomitant]
     Indication: THYROID DISORDER
     Route: 048
  4. PREMARIN [Concomitant]
     Indication: HORMONE REPLACEMENT THERAPY
     Route: 048

REACTIONS (3)
  - Dizziness [Not Recovered/Not Resolved]
  - Blood pressure decreased [Not Recovered/Not Resolved]
  - Pollakiuria [Not Recovered/Not Resolved]
